FAERS Safety Report 11736523 (Version 2)
Quarter: 2019Q3

REPORT INFORMATION
  Report Type: Spontaneous
  Country: US (occurrence: US)
  Receive Date: 20151113
  Receipt Date: 20190801
  Transmission Date: 20191004
  Serious: No
  Sender: FDA-Public Use
  Company Number: US-JNJFOC-20150922565

PATIENT
  Age: 59 Year
  Sex: Female
  Weight: 79.45 kg

DRUGS (5)
  1. LEVAQUIN [Suspect]
     Active Substance: LEVOFLOXACIN
     Route: 048
     Dates: start: 20150919
  2. LEVAQUIN [Suspect]
     Active Substance: LEVOFLOXACIN
     Indication: BRONCHITIS
     Route: 048
     Dates: start: 20190729
  3. LEVAQUIN [Suspect]
     Active Substance: LEVOFLOXACIN
     Indication: GASTRITIS
     Route: 048
     Dates: start: 2019
  4. PREDNISONE. [Concomitant]
     Active Substance: PREDNISONE
     Indication: BRONCHITIS
     Dates: start: 201907
  5. LEVAQUIN [Suspect]
     Active Substance: LEVOFLOXACIN
     Indication: DIVERTICULITIS
     Dosage: DOSE: 4 TEASPOONS?FREQUENCY: DAILY FOR 14 DAYS
     Route: 048

REACTIONS (4)
  - Drug ineffective [Unknown]
  - Tendon disorder [Recovered/Resolved]
  - Gastritis [Unknown]
  - Expired product administered [Not Recovered/Not Resolved]

NARRATIVE: CASE EVENT DATE: 20150919
